FAERS Safety Report 8778588 (Version 1)
Quarter: 2012Q4

REPORT INFORMATION
  Report Type: 
  Country: IT (occurrence: IT)
  Receive Date: 20120912
  Receipt Date: 20120912
  Transmission Date: 20130627
  Serious: Yes (Hospitalization)
  Sender: FDA-Public Use
  Company Number: PHHY2012IT078363

PATIENT
  Age: 92 Year
  Sex: Female

DRUGS (9)
  1. ALLOPURINOL [Suspect]
     Indication: HYPERURICAEMIA
     Dosage: 300 mg, daily
     Route: 048
     Dates: start: 20120422, end: 20120426
  2. NORVASC                                 /DEN/ [Concomitant]
  3. CATAPRESAN [Concomitant]
  4. LASIX [Concomitant]
  5. PANTOPAN [Concomitant]
  6. DERMATRANS [Concomitant]
  7. CONGESCOR [Concomitant]
  8. ZYLORIC [Concomitant]
  9. ACETYLSALICYLIC ACID [Concomitant]

REACTIONS (4)
  - Lacunar infarction [Unknown]
  - Confusional state [Unknown]
  - Hypertension [Unknown]
  - Pruritus [Unknown]
